FAERS Safety Report 7646940-1 (Version None)
Quarter: 2011Q3

REPORT INFORMATION
  Report Type: 
  Country: None (occurrence: None)
  Receive Date: 20110801
  Receipt Date: 20110720
  Transmission Date: 20111222
  Serious: Yes (Hospitalization, Other)
  Sender: FDA-Public Use
  Company Number: US-BAYER-201031055NA

PATIENT
  Age: 26 Year
  Sex: Female
  Weight: 110 kg

DRUGS (5)
  1. YAZ [Suspect]
     Indication: PREMENSTRUAL SYNDROME
     Dosage: UNK
     Route: 048
     Dates: start: 20080101, end: 20100201
  2. CONCERTA [Concomitant]
     Route: 048
  3. METHYLPREDNISOLONE [Concomitant]
     Dosage: 40 MG, UNK
     Dates: start: 20100224
  4. ADVIL LIQUI-GELS [Concomitant]
  5. PRISTIQ [Concomitant]
     Dosage: UNK
     Route: 048
     Dates: start: 20090901

REACTIONS (3)
  - DEPRESSION [None]
  - DEEP VEIN THROMBOSIS [None]
  - PULMONARY EMBOLISM [None]
